FAERS Safety Report 7727058-6 (Version None)
Quarter: 2011Q3

REPORT INFORMATION
  Report Type: 
  Country: None (occurrence: None)
  Receive Date: 20110902
  Receipt Date: 20110823
  Transmission Date: 20111222
  Serious: Yes (Hospitalization, Other)
  Sender: FDA-Public Use
  Company Number: JP-BRISTOL-MYERS SQUIBB COMPANY-15985542

PATIENT
  Age: 73 Year
  Sex: Male
  Weight: 51 kg

DRUGS (8)
  1. VESICARE [Suspect]
     Indication: HYPERTONIC BLADDER
     Dosage: VESICARE TABLET UNK-16AUG2011
     Route: 048
     Dates: start: 20090803
  2. SENNOSIDE [Suspect]
     Indication: CONSTIPATION
     Dosage: SENNOSIDE TABLET,1DF=36-72MG
     Route: 048
     Dates: start: 20101210
  3. GLUFAST [Suspect]
     Indication: TYPE 2 DIABETES MELLITUS
     Dosage: GLUFAST TABLET
     Route: 048
     Dates: start: 20080530
  4. PURSENNID [Concomitant]
     Dosage: PURSENNID TABLET
     Dates: start: 20100818, end: 20101209
  5. SAXAGLIPTIN [Suspect]
     Indication: TYPE 2 DIABETES MELLITUS
     Dosage: SAXAGLIPTIN TABLET PATIENT WAS WITHDRAWN FROM THE STUDY ON 22APR2011
     Route: 048
     Dates: start: 20101112, end: 20110421
  6. FLIVAS [Suspect]
     Indication: BENIGN PROSTATIC HYPERPLASIA
     Dosage: FLIVAS TABLET,31AUG09-26SEP10(50MG),27SEP10-(70MG);UNK-16AUG2011
     Route: 048
     Dates: start: 20100927
  7. PETROLATUM [Concomitant]
     Dates: start: 20101020, end: 20110106
  8. KARY UNI [Concomitant]
     Dosage: KARY UNI EYE DROPS

REACTIONS (1)
  - HEPATIC FUNCTION ABNORMAL [None]
